FAERS Safety Report 22371737 (Version 1)
Quarter: 2023Q2

REPORT INFORMATION
  Report Type: Spontaneous
  Country: FR (occurrence: FR)
  Receive Date: 20230526
  Receipt Date: 20230526
  Transmission Date: 20230722
  Serious: Yes (Hospitalization)
  Sender: FDA-Public Use
  Company Number: None

PATIENT
  Age: 41 Year
  Sex: Female
  Weight: 72 kg

DRUGS (4)
  1. PAROXETINE [Suspect]
     Active Substance: PAROXETINE
     Indication: Depression
     Route: 065
     Dates: start: 20230222, end: 20230415
  2. FLAGYL [Suspect]
     Active Substance: METRONIDAZOLE\METRONIDAZOLE HYDROCHLORIDE
     Indication: Tooth abscess
     Route: 065
     Dates: start: 20230330, end: 20230406
  3. TEGRETOL [Suspect]
     Active Substance: CARBAMAZEPINE
     Indication: Depression
     Route: 065
     Dates: start: 20230222, end: 20230412
  4. AUGMENTIN [Suspect]
     Active Substance: AMOXICILLIN\CLAVULANATE POTASSIUM
     Indication: Tooth abscess
     Route: 065
     Dates: start: 20230330, end: 20230404

REACTIONS (1)
  - Drug reaction with eosinophilia and systemic symptoms [Recovering/Resolving]

NARRATIVE: CASE EVENT DATE: 20230408
